FAERS Safety Report 4642795-8 (Version None)
Quarter: 2005Q2

REPORT INFORMATION
  Report Type: 
  Country: None (occurrence: None)
  Receive Date: 20050420
  Receipt Date: 20050404
  Transmission Date: 20051028
  Serious: Yes (Death)
  Sender: FDA-Public Use
  Company Number: EWC050343243

PATIENT
  Age: 58 Year
  Sex: Female

DRUGS (4)
  1. XIGRIS [Suspect]
     Indication: MULTI-ORGAN FAILURE
     Dosage: 24 UG/KG/HR
     Dates: start: 20050221, end: 20050223
  2. XIGRIS [Suspect]
     Indication: UROSEPSIS
     Dosage: 24 UG/KG/HR
     Dates: start: 20050221, end: 20050223
  3. ADRENALINE [Concomitant]
  4. NORADRENALINE [Concomitant]

REACTIONS (3)
  - CEREBRAL HAEMORRHAGE [None]
  - PLATELET COUNT DECREASED [None]
  - PUPIL FIXED [None]
